FAERS Safety Report 25260410 (Version 1)
Quarter: 2025Q2

REPORT INFORMATION
  Report Type: Other
  Country: IL (occurrence: IL)
  Receive Date: 20250501
  Receipt Date: 20250501
  Transmission Date: 20250717
  Serious: Yes (Other)
  Sender: APRECIA PHARMACEUTICALS
  Company Number: IL-Aprecia Pharmaceuticals-APRE20250169

PATIENT
  Age: 37 Year
  Sex: Female

DRUGS (1)
  1. LEVETIRACETAM [Suspect]
     Active Substance: LEVETIRACETAM
     Indication: Focal dyscognitive seizures
     Route: 065

REACTIONS (2)
  - Focal dyscognitive seizures [Recovering/Resolving]
  - Condition aggravated [Recovering/Resolving]
